FAERS Safety Report 4478097-2 (Version None)
Quarter: 2004Q3

REPORT INFORMATION
  Report Type: 
  Country: None (occurrence: None)
  Receive Date: 20040923
  Receipt Date: 20040812
  Transmission Date: 20050211
  Serious: No
  Sender: FDA-Public Use
  Company Number: USA040671467

PATIENT
  Age: 64 Year
  Sex: Female

DRUGS (3)
  1. FORTEO [Suspect]
     Indication: OSTEOPOROSIS
     Dates: start: 20040611
  2. DARVOCET-N 100 [Concomitant]
  3. FAMVIR (PENCICLOVIR) [Concomitant]

REACTIONS (5)
  - ARTHRALGIA [None]
  - BONE PAIN [None]
  - DIARRHOEA [None]
  - HEADACHE [None]
  - PAIN IN EXTREMITY [None]
